FAERS Safety Report 25466187 (Version 1)
Quarter: 2025Q2

REPORT INFORMATION
  Report Type: Spontaneous
  Country: FR (occurrence: FR)
  Receive Date: 20250623
  Receipt Date: 20250623
  Transmission Date: 20250716
  Serious: Yes (Hospitalization, Other)
  Sender: BIOVITRUM
  Company Number: FR-BIOVITRUM-2025-FR-008650

PATIENT
  Sex: Male

DRUGS (1)
  1. ANAKINRA [Suspect]
     Active Substance: ANAKINRA
     Indication: Giant cell arteritis
     Route: 058

REACTIONS (4)
  - Thrombocytopenia [Unknown]
  - Off label use [Recovered/Resolved]
  - Erysipelas [Unknown]
  - Haematemesis [Unknown]
